FAERS Safety Report 20528327 (Version 1)
Quarter: 2022Q1

REPORT INFORMATION
  Report Type: Spontaneous
  Country: IL (occurrence: IL)
  Receive Date: 20220228
  Receipt Date: 20220228
  Transmission Date: 20220423
  Serious: Yes (Death)
  Sender: FDA-Public Use
  Company Number: IL-PFIZER INC-202200280014

PATIENT
  Sex: Female

DRUGS (1)
  1. MYLOTARG [Suspect]
     Active Substance: GEMTUZUMAB OZOGAMICIN

REACTIONS (2)
  - Multiple organ dysfunction syndrome [Fatal]
  - Neoplasm progression [Fatal]
